FAERS Safety Report 4552175-1 (Version None)
Quarter: 2004Q4

REPORT INFORMATION
  Report Type: 
  Country: None (occurrence: None)
  Receive Date: 20041217
  Receipt Date: 20040811
  Transmission Date: 20050328
  Serious: No
  Sender: FDA-Public Use
  Company Number: 2004-BP-06065BP

PATIENT
  Age: 80 Year
  Sex: Female

DRUGS (7)
  1. SPIRIVA [Suspect]
     Indication: ASTHMA
     Dosage: 18 MCG (18 MCG),IH
     Dates: start: 20040625, end: 20040722
  2. ZYFLO [Concomitant]
  3. LANOXIN [Concomitant]
  4. NORVASC [Concomitant]
  5. THEOPHYLLINE [Concomitant]
  6. INTAL [Concomitant]
  7. FLOVENT [Concomitant]

REACTIONS (3)
  - BRONCHOSPASM [None]
  - COUGH [None]
  - DRY MOUTH [None]
